FAERS Safety Report 18964651 (Version 1)
Quarter: 2021Q1

REPORT INFORMATION
  Report Type: Spontaneous
  Country: US (occurrence: US)
  Receive Date: 20210303
  Receipt Date: 20210303
  Transmission Date: 20210420
  Serious: Yes (Hospitalization)
  Sender: FDA-Public Use
  Company Number: US-ASTRAZENECA-2021A093331

PATIENT
  Age: 810 Month
  Sex: Female
  Weight: 45.8 kg

DRUGS (4)
  1. OXYGEN. [Concomitant]
     Active Substance: OXYGEN
     Dosage: AT NIGHT
  2. SYMBICORT [Suspect]
     Active Substance: BUDESONIDE\FORMOTEROL FUMARATE DIHYDRATE
     Indication: CHRONIC OBSTRUCTIVE PULMONARY DISEASE
     Dosage: 160/4.5 DOSE, 2 PUFFS, TWO TIMES A DAY
     Route: 055
     Dates: start: 201908
  3. SYMBICORT [Suspect]
     Active Substance: BUDESONIDE\FORMOTEROL FUMARATE DIHYDRATE
     Indication: CHRONIC OBSTRUCTIVE PULMONARY DISEASE
     Dosage: 80/4.5 DOSE, 2 PUFFS, TWO TIMES A DAY
     Route: 055
  4. ALBUTEROL. [Concomitant]
     Active Substance: ALBUTEROL

REACTIONS (9)
  - Product distribution issue [Unknown]
  - Oropharyngeal pain [Unknown]
  - Product dose omission issue [Unknown]
  - Chronic obstructive pulmonary disease [Unknown]
  - Taste disorder [Unknown]
  - Illness [Unknown]
  - Cough [Recovered/Resolved]
  - Product use issue [Unknown]
  - Dyspnoea [Not Recovered/Not Resolved]

NARRATIVE: CASE EVENT DATE: 20200306
